FAERS Safety Report 15084372 (Version 1)
Quarter: 2018Q2

REPORT INFORMATION
  Report Type: Spontaneous
  Country: IT (occurrence: IT)
  Receive Date: 20180628
  Receipt Date: 20180628
  Transmission Date: 20180711
  Serious: Yes (Hospitalization)
  Sender: FDA-Public Use
  Company Number: IT-TEVA-2018-IT-916785

PATIENT
  Age: 77 Year
  Sex: Female

DRUGS (14)
  1. INDERAL [Concomitant]
     Active Substance: PROPRANOLOL HYDROCHLORIDE
  2. PANTOPRAZOLE [Concomitant]
     Active Substance: PANTOPRAZOLE
  3. TICLOPIDINE [Suspect]
     Active Substance: TICLOPIDINE
     Indication: HYPERTENSION
     Dosage: 250 MILLIGRAM DAILY;
     Route: 048
  4. KOLIBRI 37,5 MG / 325 MG, COMPRESSE EFFERVESCENTI [Concomitant]
     Dosage: 3 DOSAGE FORMS DAILY;
  5. DELTACORTENE 5 MG COMPRESSE [Concomitant]
     Active Substance: PREDNISONE
  6. PLAUNAZIDE [Concomitant]
     Active Substance: HYDROCHLOROTHIAZIDE\OLMESARTAN MEDOXOMIL
  7. EUTIROX 125 MICROGRAMMI COMPRESSE [Concomitant]
  8. NOVORAPID [Concomitant]
     Active Substance: INSULIN ASPART
  9. AMLODIPINE [Concomitant]
     Active Substance: AMLODIPINE BESYLATE
  10. DOXAZOSIN [Concomitant]
     Active Substance: DOXAZOSIN\DOXAZOSIN MESYLATE
  11. PRAVASTATINA DOC GENERICI 40 MG COMPRESSE [Concomitant]
  12. METFORMINA MYLAN [Concomitant]
     Active Substance: METFORMIN HYDROCHLORIDE
  13. JARDIANCE 10 MG FILM-COATED TABLETS [Concomitant]
  14. LANTUS [Concomitant]
     Active Substance: INSULIN GLARGINE

REACTIONS (2)
  - Gastrointestinal haemorrhage [Recovering/Resolving]
  - Normocytic anaemia [Recovering/Resolving]

NARRATIVE: CASE EVENT DATE: 20170911
